FAERS Safety Report 8218523-6 (Version None)
Quarter: 2012Q1

REPORT INFORMATION
  Report Type: 
  Country: None (occurrence: None)
  Receive Date: 20120319
  Receipt Date: 20120316
  Transmission Date: 20120608
  Serious: No
  Sender: FDA-Public Use
  Company Number: US-PFIZER INC-2012070097

PATIENT
  Sex: Male
  Weight: 103.4 kg

DRUGS (1)
  1. LIPITOR [Suspect]
     Indication: BLOOD CHOLESTEROL INCREASED
     Dosage: 20 MG, 1X/DAY
     Route: 048
     Dates: start: 20090101

REACTIONS (3)
  - MUSCLE SPASMS [None]
  - DISCOMFORT [None]
  - PAIN IN EXTREMITY [None]
